FAERS Safety Report 9482056 (Version 3)
Quarter: 2013Q4

REPORT INFORMATION
  Report Type: Spontaneous
  Country: US (occurrence: US)
  Receive Date: 20130828
  Receipt Date: 20131017
  Transmission Date: 20140711
  Serious: Yes (Other)
  Sender: FDA-Public Use
  Company Number: US-JNJFOC-20130812047

PATIENT
  Age: 87 Year
  Sex: Female

DRUGS (9)
  1. XARELTO [Suspect]
     Indication: CEREBROVASCULAR ACCIDENT PROPHYLAXIS
     Route: 048
     Dates: start: 20130627, end: 2013
  2. XARELTO [Suspect]
     Indication: ATRIAL FIBRILLATION
     Route: 048
     Dates: start: 20130627, end: 2013
  3. TRAMADOL [Concomitant]
     Route: 065
  4. FUROSEMIDE [Concomitant]
     Route: 065
  5. METOPROLOL [Concomitant]
     Route: 065
  6. DIOVAN [Concomitant]
     Route: 065
  7. SPIRONOLACTONE [Concomitant]
     Route: 065
  8. AMLODIPINE [Concomitant]
     Route: 065
  9. TIMOLOL [Concomitant]
     Route: 065

REACTIONS (2)
  - Vasculitis [Recovered/Resolved]
  - Off label use [Unknown]
